FAERS Safety Report 7690142-X (Version None)
Quarter: 2011Q3

REPORT INFORMATION
  Report Type: 
  Country: None (occurrence: None)
  Receive Date: 20110818
  Receipt Date: 20110809
  Transmission Date: 20111222
  Serious: Yes (Hospitalization)
  Sender: FDA-Public Use
  Company Number: JP-JNJFOC-20110606287

PATIENT
  Sex: Female
  Weight: 58 kg

DRUGS (31)
  1. MAGMITT [Concomitant]
     Indication: CONSTIPATION
     Route: 048
  2. FLORID D [Concomitant]
     Indication: ORAL CANDIDIASIS
     Route: 065
     Dates: start: 20100212, end: 20100224
  3. DOXORUBICIN HCL [Suspect]
     Indication: OVARIAN CANCER RECURRENT
     Dosage: CYCLE 1
     Route: 042
     Dates: start: 20100122
  4. DOXORUBICIN HCL [Suspect]
     Dosage: CYCLE 3
     Route: 042
     Dates: start: 20100226, end: 20100226
  5. NEO-MERCAZOLE TAB [Concomitant]
     Route: 048
     Dates: end: 20100204
  6. GLYCERINE [Concomitant]
     Route: 049
     Dates: start: 20100209, end: 20100224
  7. DEXALTIN [Concomitant]
     Route: 061
     Dates: start: 20100205, end: 20100224
  8. WHITE PETROLATUM [Concomitant]
     Indication: PALMAR-PLANTAR ERYTHRODYSAESTHESIA SYNDROME
     Route: 065
     Dates: start: 20100309
  9. GLYCERINE [Concomitant]
     Indication: PROPHYLAXIS
     Route: 049
     Dates: start: 20100227, end: 20100324
  10. DOXORUBICIN HCL [Suspect]
     Route: 042
     Dates: start: 20100428, end: 20100428
  11. AZUNOL [Concomitant]
     Indication: STOMATITIS
     Dosage: Q.S
     Route: 049
     Dates: start: 20091222
  12. PURSENNID [Concomitant]
     Indication: CONSTIPATION
     Route: 048
  13. MAXIPIME [Concomitant]
     Indication: PYREXIA
     Route: 042
     Dates: start: 20100201, end: 20100201
  14. DEXALTIN [Concomitant]
     Indication: STOMATITIS
     Route: 061
     Dates: start: 20100302, end: 20100330
  15. HACHIAZULE [Concomitant]
     Route: 049
     Dates: start: 20100227, end: 20100324
  16. POTASSIUM CHLORIDE [Concomitant]
     Indication: DECREASED APPETITE
     Route: 042
     Dates: start: 20100126, end: 20100126
  17. FELBINAC [Concomitant]
     Indication: MYALGIA
     Route: 003
     Dates: start: 20100308, end: 20100314
  18. DOXORUBICIN HCL [Suspect]
     Dosage: CYCLE 2
     Route: 042
     Dates: start: 20100122, end: 20100122
  19. NAUZELIN [Concomitant]
     Indication: NAUSEA
     Route: 048
  20. NEO-MERCAZOLE TAB [Concomitant]
     Indication: BASEDOW'S DISEASE
     Route: 048
     Dates: start: 20100205
  21. MEROPENEM [Concomitant]
     Indication: PYREXIA
     Route: 042
     Dates: start: 20100201, end: 20100201
  22. HACHIAZULE [Concomitant]
     Route: 049
     Dates: start: 20100227, end: 20100324
  23. HACHIAZULE [Concomitant]
     Indication: PROPHYLAXIS
     Route: 049
     Dates: start: 20100209, end: 20100224
  24. GLYCERINE [Concomitant]
     Indication: STOMATITIS
     Route: 049
     Dates: start: 20100227, end: 20100324
  25. GLYCERINE [Concomitant]
     Route: 049
     Dates: start: 20100209, end: 20100224
  26. DAI-KENCHU-TO [Concomitant]
     Indication: CONSTIPATION
     Route: 048
  27. RHYTHMY [Concomitant]
     Indication: INSOMNIA
     Route: 048
  28. MAXIPIME [Concomitant]
     Route: 042
     Dates: start: 20100129, end: 20100130
  29. MEROPENEM [Concomitant]
     Route: 042
     Dates: start: 20100202, end: 20100211
  30. AZUNOL [Concomitant]
     Indication: PROPHYLAXIS
     Dosage: Q.S
     Route: 049
     Dates: start: 20091222
  31. HACHIAZULE [Concomitant]
     Indication: STOMATITIS
     Route: 049
     Dates: start: 20100209, end: 20100224

REACTIONS (1)
  - MALAISE [None]
